FAERS Safety Report 5936458-6 (Version None)
Quarter: 2008Q4

REPORT INFORMATION
  Report Type: 
  Country: None (occurrence: None)
  Receive Date: 20081030
  Receipt Date: 20081022
  Transmission Date: 20090506
  Serious: Yes (Life-Threatening, Hospitalization)
  Sender: FDA-Public Use
  Company Number: HU-ROCHE-592778

PATIENT
  Sex: Female
  Weight: 67 kg

DRUGS (1)
  1. PEG-INTERFERON ALFA 2A (RO 25-8310) [Suspect]
     Indication: HEPATITIS C
     Dosage: PERMENANTLY DISCONTINUED DOSAGE FORM: PFS
     Route: 058
     Dates: start: 20080917, end: 20081021

REACTIONS (2)
  - DRUG TOXICITY [None]
  - SUICIDAL IDEATION [None]
